FAERS Safety Report 5629871-8 (Version None)
Quarter: 2008Q1

REPORT INFORMATION
  Report Type: 
  Country: None (occurrence: None)
  Receive Date: 20080218
  Receipt Date: 20080213
  Transmission Date: 20080703
  Serious: Yes (Hospitalization)
  Sender: FDA-Public Use
  Company Number: US-ASTRAZENECA-2008UW01333

PATIENT
  Age: 15979 Day
  Sex: Male
  Weight: 105.9 kg

DRUGS (4)
  1. CRESTOR [Suspect]
     Indication: HYPERLIPIDAEMIA
     Route: 048
     Dates: start: 20030815, end: 20071220
  2. CRESTOR [Suspect]
     Indication: LIPIDS DECREASED
     Route: 048
     Dates: start: 20030815, end: 20071220
  3. RHINOCORT [Concomitant]
  4. NEXIUM [Concomitant]
     Indication: GASTROOESOPHAGEAL REFLUX DISEASE
     Route: 048
     Dates: start: 20050801

REACTIONS (1)
  - TENDON RUPTURE [None]
